FAERS Safety Report 12687047 (Version 1)
Quarter: 2016Q3

REPORT INFORMATION
  Report Type: Spontaneous
  Country: BR (occurrence: BR)
  Receive Date: 20160826
  Receipt Date: 20160826
  Transmission Date: 20161109
  Serious: Yes (Other)
  Sender: FDA-Public Use
  Company Number: BR-ROCHE-1818057

PATIENT
  Age: 66 Year
  Sex: Male

DRUGS (9)
  1. LEUCOVORIN. [Suspect]
     Active Substance: LEUCOVORIN
     Indication: PRODUCT USED FOR UNKNOWN INDICATION
     Route: 065
     Dates: start: 20140205, end: 20151207
  2. FLUOROURACIL. [Suspect]
     Active Substance: FLUOROURACIL
     Indication: PRODUCT USED FOR UNKNOWN INDICATION
     Route: 065
     Dates: start: 20140205, end: 20151207
  3. LEUCOVORIN. [Suspect]
     Active Substance: LEUCOVORIN
     Route: 065
     Dates: end: 20100806
  4. LEUCOVORIN. [Suspect]
     Active Substance: LEUCOVORIN
     Route: 065
     Dates: end: 20111212
  5. AVASTIN [Suspect]
     Active Substance: BEVACIZUMAB
     Indication: PRODUCT USED FOR UNKNOWN INDICATION
     Route: 065
     Dates: start: 20140205, end: 20151207
  6. OXALIPLATIN. [Suspect]
     Active Substance: OXALIPLATIN
     Indication: PRODUCT USED FOR UNKNOWN INDICATION
     Route: 065
     Dates: end: 20111212
  7. FLUOROURACIL. [Suspect]
     Active Substance: FLUOROURACIL
     Route: 065
     Dates: end: 20100806
  8. IRINOTECAN [Suspect]
     Active Substance: IRINOTECAN
     Indication: PRODUCT USED FOR UNKNOWN INDICATION
     Route: 065
     Dates: start: 20140205, end: 20151207
  9. FLUOROURACIL. [Suspect]
     Active Substance: FLUOROURACIL
     Route: 065
     Dates: end: 20111212

REACTIONS (4)
  - Pulmonary mass [Unknown]
  - Neuropathy peripheral [Unknown]
  - Nodule [Unknown]
  - Hepatic neoplasm [Unknown]
